FAERS Safety Report 5701553-3 (Version None)
Quarter: 2008Q2

REPORT INFORMATION
  Report Type: 
  Country: None (occurrence: None)
  Receive Date: 20080408
  Receipt Date: 20080331
  Transmission Date: 20081010
  Serious: Yes (Other)
  Sender: FDA-Public Use
  Company Number: 2008007823

PATIENT
  Age: 34 Year
  Sex: Female
  Weight: 52.2 kg

DRUGS (2)
  1. ZYRTEC [Suspect]
     Indication: HYPERSENSITIVITY
     Dosage: 1 PILL ONCE DAILY, ORAL
     Route: 048
     Dates: start: 20080320, end: 20080330
  2. ADVAIR DISKUS 100/50 [Suspect]
     Indication: ASTHMA

REACTIONS (3)
  - DYSARTHRIA [None]
  - FEELING ABNORMAL [None]
  - SOMNOLENCE [None]
